FAERS Safety Report 12299189 (Version 1)
Quarter: 2016Q2

REPORT INFORMATION
  Report Type: Spontaneous
  Country: US (occurrence: None)
  Receive Date: 20160422
  Receipt Date: 20160422
  Transmission Date: 20160815
  Serious: No
  Sender: FDA-Public Use
  Company Number: None

PATIENT
  Age: 36 Year
  Sex: Female
  Weight: 60.78 kg

DRUGS (5)
  1. BACLOFEN. [Concomitant]
     Active Substance: BACLOFEN
  2. ATENOLOL. [Concomitant]
     Active Substance: ATENOLOL
  3. ADDERALL [Concomitant]
     Active Substance: AMPHETAMINE ASPARTATE\AMPHETAMINE SULFATE\DEXTROAMPHETAMINE SACCHARATE\DEXTROAMPHETAMINE SULFATE
  4. MELATONIN [Concomitant]
     Active Substance: MELATONIN
  5. VYVANSE [Suspect]
     Active Substance: LISDEXAMFETAMINE DIMESYLATE
     Indication: ATTENTION DEFICIT/HYPERACTIVITY DISORDER
     Dosage: 30 CAPSULES IN THE MORNING TAKEN BY MOUTH
     Route: 048
     Dates: start: 20160407, end: 20160408

REACTIONS (5)
  - Food craving [None]
  - Condition aggravated [None]
  - Lethargy [None]
  - Fatigue [None]
  - Attention deficit/hyperactivity disorder [None]

NARRATIVE: CASE EVENT DATE: 20160407
